FAERS Safety Report 4443249-4 (Version None)
Quarter: 2004Q3

REPORT INFORMATION
  Report Type: 
  Country: None (occurrence: None)
  Receive Date: 20040903
  Receipt Date: 20040903
  Transmission Date: 20050211
  Serious: No
  Sender: FDA-Public Use
  Company Number: None

PATIENT
  Age: 42 Year
  Sex: Male
  Weight: 90.7194 kg

DRUGS (1)
  1. LIPITOR [Suspect]
     Dosage: 20 MG   DAILY   ORAL
     Route: 048
     Dates: start: 20030701, end: 20040801

REACTIONS (5)
  - ASTHENIA [None]
  - HYPOAESTHESIA [None]
  - MUSCULOSKELETAL STIFFNESS [None]
  - MYALGIA [None]
  - PARAESTHESIA [None]
